FAERS Safety Report 7949968-7 (Version None)
Quarter: 2011Q4

REPORT INFORMATION
  Report Type: 
  Country: None (occurrence: None)
  Receive Date: 20111130
  Receipt Date: 20111118
  Transmission Date: 20120403
  Serious: Yes (Other)
  Sender: FDA-Public Use
  Company Number: BR-BRISTOL-MYERS SQUIBB COMPANY-16256000

PATIENT
  Age: 55 Year
  Sex: Female

DRUGS (2)
  1. METFORMIN HCL [Suspect]
     Indication: DIABETES MELLITUS
     Dosage: TOTALDOSE:1700MG.
     Route: 048
  2. METFORMIN HYDROCHLORIDE [Concomitant]
     Dosage: STOPPED.
     Route: 048

REACTIONS (2)
  - DIARRHOEA [None]
  - OPTIC ATROPHY [None]
